FAERS Safety Report 18659805 (Version 1)
Quarter: 2020Q4

REPORT INFORMATION
  Report Type: Report from Study
  Country: AE (occurrence: AE)
  Receive Date: 20201223
  Receipt Date: 20201223
  Transmission Date: 20210114
  Serious: Yes (Other)
  Sender: FDA-Public Use
  Company Number: AE-TAKEDA-2020TUS059472

PATIENT
  Age: 52 Year
  Sex: Male

DRUGS (1)
  1. BORTEZOMIB. [Suspect]
     Active Substance: BORTEZOMIB
     Indication: PLASMA CELL MYELOMA
     Dosage: UNK
     Route: 065
     Dates: start: 20200815

REACTIONS (2)
  - Therapy cessation [Unknown]
  - Bone marrow transplant [Unknown]

NARRATIVE: CASE EVENT DATE: 20201101
